FAERS Safety Report 13890791 (Version 1)
Quarter: 2017Q3

REPORT INFORMATION
  Report Type: Spontaneous
  Country: CH (occurrence: CH)
  Receive Date: 20170822
  Receipt Date: 20170822
  Transmission Date: 20171127
  Serious: Yes (Hospitalization, Other)
  Sender: FDA-Public Use
  Company Number: CH-MYLANLABS-2017M1051686

PATIENT

DRUGS (14)
  1. BACTRIM [Suspect]
     Active Substance: SULFAMETHOXAZOLE\TRIMETHOPRIM
     Indication: PRODUCT USED FOR UNKNOWN INDICATION
  2. ZESTRIL [Suspect]
     Active Substance: LISINOPRIL
     Indication: PRODUCT USED FOR UNKNOWN INDICATION
     Route: 048
  3. LIXIANA [Concomitant]
     Active Substance: EDOXABAN TOSYLATE
     Route: 048
  4. TOREM 5, TABLETTEN [Suspect]
     Active Substance: TORSEMIDE
     Indication: PRODUCT USED FOR UNKNOWN INDICATION
     Route: 048
     Dates: end: 20170303
  5. BECOZYM [Concomitant]
     Active Substance: VITAMINS
  6. PANTOZOL [Concomitant]
     Active Substance: PANTOPRAZOLE SODIUM
  7. PREDNISON GALEPHARM [Concomitant]
     Active Substance: PREDNISONE
  8. OVESTIN [Concomitant]
     Active Substance: ESTRIOL
     Route: 067
  9. METOPROLOL. [Concomitant]
     Active Substance: METOPROLOL
     Dates: end: 20170303
  10. RIFATER [Concomitant]
     Active Substance: ISONIAZID\PYRAZINAMIDE\RIFAMPIN
     Dates: end: 20170303
  11. BENERVA [Concomitant]
     Active Substance: THIAMINE
  12. VITAMIN B6 STREULI [Concomitant]
  13. NOVALGIN [Concomitant]
     Active Substance: METAMIZOLE SODIUM
  14. ZYPREXA [Concomitant]
     Active Substance: OLANZAPINE

REACTIONS (1)
  - Acute kidney injury [Recovered/Resolved]

NARRATIVE: CASE EVENT DATE: 20170303
